FAERS Safety Report 14283349 (Version 1)
Quarter: 2017Q4

REPORT INFORMATION
  Report Type: Spontaneous
  Country: DE (occurrence: DE)
  Receive Date: 20171213
  Receipt Date: 20171213
  Transmission Date: 20180321
  Serious: Yes (Other)
  Sender: FDA-Public Use
  Company Number: DE-BAUSCH-BL-2017-033180

PATIENT
  Sex: Female

DRUGS (2)
  1. ALL-TRANS RETINOIC ACID [Suspect]
     Active Substance: TRETINOIN
     Indication: ACUTE PROMYELOCYTIC LEUKAEMIA
     Dosage: 36 HOUR AFTER ADMISSION
     Route: 064
  2. DEXAMETHASONE. [Suspect]
     Active Substance: DEXAMETHASONE
     Indication: PROPHYLAXIS
     Route: 064

REACTIONS (4)
  - Foetal exposure during pregnancy [Unknown]
  - Infantile apnoea [Unknown]
  - Poor feeding infant [Unknown]
  - Premature baby [Unknown]
